FAERS Safety Report 22101866 (Version 3)
Quarter: 2023Q1

REPORT INFORMATION
  Report Type: Spontaneous
  Country: CN (occurrence: CN)
  Receive Date: 20230316
  Receipt Date: 20230329
  Transmission Date: 20230418
  Serious: Yes (Other)
  Sender: FDA-Public Use
  Company Number: CN-ROCHE-3303742

PATIENT
  Age: 67 Year
  Sex: Female

DRUGS (1)
  1. TARCEVA [Suspect]
     Active Substance: ERLOTINIB HYDROCHLORIDE
     Indication: Lung cancer metastatic
     Dosage: 150 MG, ONCE DAILY (NEARLY 7 YEARS)
     Route: 048

REACTIONS (5)
  - Corneal epithelium defect [Recovering/Resolving]
  - Lenticular opacities [Unknown]
  - Conjunctival hyperaemia [Unknown]
  - Growth of eyelashes [Unknown]
  - Eyelash thickening [Unknown]
